FAERS Safety Report 5014118-6 (Version None)
Quarter: 2006Q2

REPORT INFORMATION
  Report Type: 
  Country: None (occurrence: None)
  Receive Date: 20060414
  Receipt Date: 20060203
  Transmission Date: 20061013
  Serious: No
  Sender: FDA-Public Use
  Company Number: 2006SP000634

PATIENT
  Age: 38 Year
  Sex: Female
  Weight: 65.7716 kg

DRUGS (7)
  1. LUNESTA [Suspect]
     Indication: INSOMNIA
     Dosage: 3 MG;HS;ORAL
     Route: 048
     Dates: start: 20060202, end: 20060203
  2. RESTORIL [Concomitant]
  3. OXYCODONE HCL [Concomitant]
  4. OXYCONTIN [Concomitant]
  5. FLEXERIL [Concomitant]
  6. VALIUM [Concomitant]
  7. REMERON [Concomitant]

REACTIONS (1)
  - DYSGEUSIA [None]
